FAERS Safety Report 22208012 (Version 1)
Quarter: 2023Q2

REPORT INFORMATION
  Report Type: Spontaneous
  Country: US (occurrence: US)
  Receive Date: 20230413
  Receipt Date: 20230413
  Transmission Date: 20230722
  Serious: No
  Sender: FDA-Public Use
  Company Number: US-SA-SAC20230412000043

PATIENT
  Age: 18 Year
  Sex: Male
  Weight: 45.35 kg

DRUGS (1)
  1. CERDELGA [Suspect]
     Active Substance: ELIGLUSTAT
     Indication: Gaucher^s disease
     Dosage: 84 MG, BID
     Route: 065
     Dates: start: 20220418

REACTIONS (3)
  - Malaise [Unknown]
  - Dry throat [Unknown]
  - Dyspnoea [Unknown]
